FAERS Safety Report 9839212 (Version 2)
Quarter: 2014Q1

REPORT INFORMATION
  Report Type: Spontaneous
  Country: CA (occurrence: CA)
  Receive Date: 20140123
  Receipt Date: 20140123
  Transmission Date: 20141002
  Serious: Yes (Hospitalization, Other)
  Sender: FDA-Public Use
  Company Number: CA-BAXTER-2014BAX001362

PATIENT
  Age: 54 Year
  Sex: Female

DRUGS (3)
  1. DIANEAL PD4 SOLUTION WITH 2.5% DEXTROSE AND 2.5 MEQ/L CALCIUM [Suspect]
     Indication: PERITONEAL DIALYSIS
     Dosage: 2 BAGS
     Route: 033
  2. DIANEAL PD4 SOLUTION WITH 4.25% DEXTROSE AND 2.5 MEQ/L CALCIUM [Suspect]
     Indication: PERITONEAL DIALYSIS
     Dosage: 1 BAG
     Route: 033
  3. EXTRANEAL [Suspect]
     Indication: PERITONEAL DIALYSIS
     Dosage: 1 BAG
     Route: 033

REACTIONS (5)
  - Diabetes mellitus [Unknown]
  - Cardiac disorder [Recovering/Resolving]
  - Cardiac failure [Recovering/Resolving]
  - Renal failure [Recovering/Resolving]
  - Influenza [Recovering/Resolving]
